FAERS Safety Report 16328638 (Version 1)
Quarter: 2019Q2

REPORT INFORMATION
  Report Type: Spontaneous
  Country: US (occurrence: US)
  Receive Date: 20190518
  Receipt Date: 20190518
  Transmission Date: 20190711
  Serious: Yes (Other)
  Sender: FDA-Public Use
  Company Number: PHEH2019US021433

PATIENT
  Sex: Male

DRUGS (1)
  1. TASIGNA [Suspect]
     Active Substance: NILOTINIB
     Indication: CHRONIC MYELOID LEUKAEMIA
     Dosage: 2 DF, BID
     Route: 048
     Dates: start: 20130711

REACTIONS (29)
  - Asthma [Unknown]
  - Benign prostatic hyperplasia [Unknown]
  - Hyperglycaemia [Unknown]
  - Pneumonia [Unknown]
  - Hypoaesthesia [Unknown]
  - Weight decreased [Unknown]
  - Syncope [Unknown]
  - Oesophagitis [Unknown]
  - Post herpetic neuralgia [Unknown]
  - Fatigue [Unknown]
  - Upper respiratory tract infection [Unknown]
  - Abdominal pain lower [Unknown]
  - Morton^s neuralgia [Unknown]
  - Gastritis [Unknown]
  - Cough [Unknown]
  - Blood bilirubin increased [Unknown]
  - Ventricular tachycardia [Unknown]
  - Neuropathy peripheral [Unknown]
  - Synovial cyst [Unknown]
  - Paraesthesia [Unknown]
  - Arteriosclerosis [Unknown]
  - Arthralgia [Unknown]
  - Acute kidney injury [Unknown]
  - Skin irritation [Unknown]
  - Sinusitis [Unknown]
  - Nausea [Unknown]
  - Headache [Unknown]
  - Rash [Unknown]
  - Hypertension [Unknown]
